FAERS Safety Report 7303954-9 (Version None)
Quarter: 2011Q1

REPORT INFORMATION
  Report Type: 
  Country: None (occurrence: None)
  Receive Date: 20110221
  Receipt Date: 20110216
  Transmission Date: 20110831
  Serious: Yes (Other)
  Sender: FDA-Public Use
  Company Number: US-ROCHE-760411

PATIENT
  Age: 66 Year
  Sex: Male

DRUGS (2)
  1. VALCYTE [Suspect]
     Route: 065
  2. MYCOPHENOLATE MOFETIL [Suspect]
     Route: 065

REACTIONS (3)
  - BK VIRUS INFECTION [None]
  - BLOOD GLUCOSE INCREASED [None]
  - KIDNEY TRANSPLANT REJECTION [None]
